FAERS Safety Report 7969298-7 (Version None)
Quarter: 2011Q4

REPORT INFORMATION
  Report Type: 
  Country: None (occurrence: None)
  Receive Date: 20111209
  Receipt Date: 20111130
  Transmission Date: 20120403
  Serious: Yes (Other)
  Sender: FDA-Public Use
  Company Number: US-ASTRAZENECA-2011SE72774

PATIENT
  Sex: Female

DRUGS (1)
  1. NEXIUM [Suspect]
     Route: 048

REACTIONS (3)
  - ILL-DEFINED DISORDER [None]
  - NEOPLASM MALIGNANT [None]
  - INAPPROPRIATE SCHEDULE OF DRUG ADMINISTRATION [None]
